FAERS Safety Report 4338066-X (Version None)
Quarter: 2004Q2

REPORT INFORMATION
  Report Type: 
  Country: None (occurrence: None)
  Receive Date: 20040407
  Receipt Date: 20040324
  Transmission Date: 20050107
  Serious: Yes (Other)
  Sender: FDA-Public Use
  Company Number: GB-JNJFOC-20040305522

PATIENT
  Age: 28 Year
  Sex: Female

DRUGS (9)
  1. TOPAMAX [Suspect]
     Indication: MOOD ALTERED
     Dosage: 150 MG, ORAL
     Route: 048
     Dates: start: 20031117
  2. VENLAFAXINE (VENLAFAXINE) [Concomitant]
  3. COLPERMIN (PEPPERMINT OIL) [Concomitant]
  4. LACTULOSE [Concomitant]
  5. MEFENAMIC ACID (MEFANAMIC ACID) [Concomitant]
  6. PYRIDOXINE HCL TAB [Concomitant]
  7. QUETIAPINE (QUETIAPINE) [Concomitant]
  8. GLYCERIN (GLYCEROL) [Concomitant]
  9. SENNA (SENNA) [Concomitant]

REACTIONS (4)
  - DIARRHOEA [None]
  - HYPERVENTILATION [None]
  - RENAL TUBULAR ACIDOSIS [None]
  - TETANY [None]
